FAERS Safety Report 4364697-7 (Version None)
Quarter: 2004Q2

REPORT INFORMATION
  Report Type: 
  Country: None (occurrence: None)
  Receive Date: 20040521
  Receipt Date: 20040510
  Transmission Date: 20050107
  Serious: Yes (Hospitalization, Other)
  Sender: FDA-Public Use
  Company Number: USA040362558

PATIENT
  Age: 57 Year
  Sex: Male

DRUGS (2)
  1. FORTEO (TERIPARATIDE) [Suspect]
     Indication: OSTEOPOROSIS
     Dosage: 20 UG/1 DAY
     Dates: start: 20040108
  2. DILANTIN [Concomitant]

REACTIONS (6)
  - ABDOMINAL WALL DISORDER [None]
  - ASTHMA [None]
  - CELLULITIS [None]
  - INDURATION [None]
  - INJECTION SITE ERYTHEMA [None]
  - RESPIRATORY FAILURE [None]
